FAERS Safety Report 14149691 (Version 1)
Quarter: 2017Q4

REPORT INFORMATION
  Report Type: Spontaneous
  Country: US (occurrence: US)
  Receive Date: 20171101
  Receipt Date: 20171101
  Transmission Date: 20180321
  Serious: No
  Sender: FDA-Public Use
  Company Number: US-BAYER-2017-209473

PATIENT
  Age: 62 Year
  Sex: Female
  Weight: 100 kg

DRUGS (4)
  1. TRAMADOL. [Concomitant]
     Active Substance: TRAMADOL
     Dosage: UNK
  2. COLACE [Concomitant]
     Active Substance: DOCUSATE SODIUM
     Dosage: UNK
  3. MIRALAX [Suspect]
     Active Substance: POLYETHYLENE GLYCOL 3350
     Indication: GASTROINTESTINAL DISORDER
     Dosage: 0.33 DF, TID
     Route: 048
     Dates: start: 20171028
  4. TYLENOL WITH CODEINE [Concomitant]
     Active Substance: ACETAMINOPHEN\CODEINE PHOSPHATE
     Dosage: UNK

REACTIONS (2)
  - Wrong technique in product usage process [Unknown]
  - Inappropriate prescribing [Unknown]

NARRATIVE: CASE EVENT DATE: 201710
